FAERS Safety Report 9612570 (Version 2)
Quarter: 2013Q4

REPORT INFORMATION
  Report Type: Spontaneous
  Country: GB (occurrence: GB)
  Receive Date: 20131010
  Receipt Date: 20131202
  Transmission Date: 20140711
  Serious: Yes (Hospitalization)
  Sender: FDA-Public Use
  Company Number: PHFR2013GB005665

PATIENT
  Age: 43 Year
  Sex: Male
  Weight: 92.8 kg

DRUGS (6)
  1. CLOZARIL [Suspect]
     Indication: SCHIZOPHRENIA
     Dosage: UNK
     Route: 048
     Dates: start: 20010930
  2. CLOZARIL [Suspect]
     Dosage: 450 MG, DAILY
     Route: 048
     Dates: start: 200110
  3. VALPROATE SEMISODIUM [Concomitant]
     Indication: MOOD ALTERED
     Dosage: 500 MG, DAILY
     Route: 048
  4. CLONAZEPAM [Concomitant]
     Indication: SLEEP DISORDER
     Dosage: 2 MG, DAILY
     Route: 048
  5. CLONAZEPAM [Concomitant]
     Indication: ANXIETY
  6. L-THYROXIN [Concomitant]
     Indication: HYPOTHYROIDISM
     Dosage: 50 UG, DAILY
     Route: 048

REACTIONS (2)
  - Groin infection [Recovering/Resolving]
  - Platelet count decreased [Recovering/Resolving]
